FAERS Safety Report 11372063 (Version 1)
Quarter: 2015Q3

REPORT INFORMATION
  Report Type: Spontaneous
  Country: US (occurrence: US)
  Receive Date: 20150812
  Receipt Date: 20150812
  Transmission Date: 20151125
  Serious: No
  Sender: FDA-Public Use
  Company Number: GXBR2015US001512

PATIENT
  Sex: Female

DRUGS (1)
  1. ALCLOMETASONE [Suspect]
     Active Substance: ALCLOMETASONE
     Indication: OCCUPATIONAL EXPOSURE TO PRODUCT
     Dosage: 1 DF, ONCE/SINGLE
     Route: 061

REACTIONS (3)
  - Application site pain [Recovered/Resolved]
  - Occupational exposure to product [Recovered/Resolved]
  - Application site pruritus [Recovered/Resolved]
